FAERS Safety Report 25664288 (Version 2)
Quarter: 2025Q3

REPORT INFORMATION
  Report Type: Report from Study
  Country: US (occurrence: US)
  Receive Date: 20250811
  Receipt Date: 20250908
  Transmission Date: 20251020
  Serious: No
  Sender: SUNOVION
  Company Number: US-SMPA-2025SPA010006

PATIENT
  Age: 75 Year
  Sex: Male

DRUGS (13)
  1. ORGOVYX [Suspect]
     Active Substance: RELUGOLIX
     Indication: Product used for unknown indication
     Route: 048
  2. ORGOVYX [Suspect]
     Active Substance: RELUGOLIX
     Route: 048
  3. ATORVASTATIN [Concomitant]
     Active Substance: ATORVASTATIN
  4. VITAMIN B12 [Concomitant]
     Active Substance: CYANOCOBALAMIN
  5. VITAMIN D3 [Concomitant]
     Active Substance: CHOLECALCIFEROL
  6. FLUTICASONE [Concomitant]
     Active Substance: FLUTICASONE
  7. KETOCONAZOLE [Concomitant]
     Active Substance: KETOCONAZOLE
  8. LISINOPRIL [Concomitant]
     Active Substance: LISINOPRIL
  9. SILDENAFIL [Concomitant]
     Active Substance: SILDENAFIL
  10. VITAMINS [Concomitant]
     Active Substance: VITAMINS
  11. XTANDI [Concomitant]
     Active Substance: ENZALUTAMIDE
  12. FLUOCINOLONE ACETONIDE [Concomitant]
     Active Substance: FLUOCINOLONE ACETONIDE
  13. MINERALS [Concomitant]
     Active Substance: MINERALS

REACTIONS (4)
  - Hypotension [Recovering/Resolving]
  - Brain fog [Unknown]
  - Fatigue [Unknown]
  - Hot flush [Unknown]
